FAERS Safety Report 5034682-0 (Version None)
Quarter: 2006Q2

REPORT INFORMATION
  Report Type: 
  Country: None (occurrence: None)
  Receive Date: 20060621
  Receipt Date: 20060607
  Transmission Date: 20061013
  Serious: Yes (Hospitalization)
  Sender: FDA-Public Use
  Company Number: T200600637

PATIENT
  Age: 70 Year
  Sex: Female

DRUGS (8)
  1. OXYCODONE HYDROCHLORIDE [Suspect]
     Indication: PAIN
     Dosage: SEE IMAGE
  2. FLUVOXAMINE (FLUVOXAMINE) 200MG [Suspect]
     Indication: DEPRESSION
     Dosage: 200 MG, QD,
  3. DOXEPIN HCL [Concomitant]
  4. DICLOFENAC (DICLOFENAC) [Concomitant]
  5. RALOXIFENE HCL [Concomitant]
  6. CALCIUM CARBONATE (CALCIUM CARBONATE) [Concomitant]
  7. DILTIAZEM CD (DILTIAZEM HYDROCHLORIDE) [Concomitant]
  8. SIMVASTATIN [Concomitant]

REACTIONS (3)
  - ATRIAL FIBRILLATION [None]
  - BLOOD PRESSURE DIASTOLIC DECREASED [None]
  - SEROTONIN SYNDROME [None]
